FAERS Safety Report 24753616 (Version 1)
Quarter: 2024Q4

REPORT INFORMATION
  Report Type: Spontaneous
  Country: PL (occurrence: PL)
  Receive Date: 20241219
  Receipt Date: 20241219
  Transmission Date: 20250115
  Serious: Yes (Other)
  Sender: MERCK
  Company Number: PL-009507513-2412POL005836

PATIENT
  Age: 66 Year
  Sex: Female

DRUGS (1)
  1. PEMBROLIZUMAB [Suspect]
     Active Substance: PEMBROLIZUMAB
     Indication: Malignant melanoma of sites other than skin
     Dosage: 200 MG EVERY 3 WEEKS, 27 CYCLES
     Dates: start: 202110

REACTIONS (4)
  - Pulmonary toxicity [Unknown]
  - Drug-induced liver injury [Unknown]
  - Pancreatic toxicity [Unknown]
  - Skin toxicity [Unknown]
